FAERS Safety Report 12706364 (Version 1)
Quarter: 2016Q3

REPORT INFORMATION
  Report Type: Spontaneous
  Country: US (occurrence: US)
  Receive Date: 20160901
  Receipt Date: 20160901
  Transmission Date: 20161109
  Serious: No
  Sender: FDA-Public Use
  Company Number: US-BAYER-2016-164460

PATIENT
  Age: 79 Year
  Sex: Female
  Weight: 49.89 kg

DRUGS (5)
  1. ALEVE [Suspect]
     Active Substance: NAPROXEN SODIUM
     Indication: ARTHRITIS
     Dosage: 1 DF, BID
     Route: 048
     Dates: start: 2011
  2. VITAMIN C [Concomitant]
     Active Substance: ASCORBIC ACID
  3. BAYER LOW DOSE [Concomitant]
     Active Substance: ASPIRIN
     Indication: ANALGESIC THERAPY
     Dosage: UNK UNK, PRN
  4. ALEVE [Suspect]
     Active Substance: NAPROXEN SODIUM
     Indication: ARTHRITIS
     Dosage: 1 DF, BID
     Route: 048
  5. OXYCONTIN [Concomitant]
     Active Substance: OXYCODONE HYDROCHLORIDE
     Indication: URINARY INCONTINENCE

REACTIONS (3)
  - Fluid retention [Not Recovered/Not Resolved]
  - Incontinence [Not Recovered/Not Resolved]
  - Wrong technique in product usage process [None]
